FAERS Safety Report 6107516-0 (Version None)
Quarter: 2009Q1

REPORT INFORMATION
  Report Type: 
  Country: None (occurrence: None)
  Receive Date: 20090309
  Receipt Date: 20090302
  Transmission Date: 20090719
  Serious: Yes (Other)
  Sender: FDA-Public Use
  Company Number: US-JNJFOC-20090300925

PATIENT
  Age: 22 Year
  Sex: Male
  Weight: 53.98 kg

DRUGS (2)
  1. MOTRIN IB [Suspect]
  2. MOTRIN IB [Suspect]
     Indication: PYREXIA
     Dosage: AS NEEDED

REACTIONS (3)
  - OROPHARYNGEAL BLISTERING [None]
  - RESPIRATORY RATE DECREASED [None]
  - WEIGHT DECREASED [None]
